APPROVED DRUG PRODUCT: PREDNISOLONE SODIUM PHOSPHATE
Active Ingredient: PREDNISOLONE SODIUM PHOSPHATE
Strength: EQ 5MG BASE/5ML
Dosage Form/Route: SOLUTION;ORAL
Application: A075181 | Product #001
Applicant: WE PHARMACEUTICALS INC
Approved: Dec 23, 2002 | RLD: No | RS: No | Type: DISCN